FAERS Safety Report 18267574 (Version 1)
Quarter: 2020Q3

REPORT INFORMATION
  Report Type: Spontaneous
  Country: US (occurrence: US)
  Receive Date: 20200915
  Receipt Date: 20200915
  Transmission Date: 20201103
  Serious: No
  Sender: FDA-Public Use
  Company Number: None

PATIENT
  Age: 89 Year
  Sex: Male
  Weight: 62.69 kg

DRUGS (7)
  1. CAPECITABINE. [Suspect]
     Active Substance: CAPECITABINE
     Indication: GALLBLADDER CANCER
     Route: 048
     Dates: start: 20200622, end: 20200915
  2. GLUCOTROL XL [Concomitant]
     Active Substance: GLIPIZIDE
  3. ELIQUIS [Concomitant]
     Active Substance: APIXABAN
  4. COMBIGAN [Concomitant]
     Active Substance: BRIMONIDINE TARTRATE\TIMOLOL MALEATE
  5. PRAVACHOL [Concomitant]
     Active Substance: PRAVASTATIN SODIUM
  6. MULTIVITAMINS [Concomitant]
     Active Substance: VITAMINS
  7. DILTIAZEM HCL ER [Concomitant]
     Active Substance: DILTIAZEM HYDROCHLORIDE

REACTIONS (1)
  - Hospice care [None]

NARRATIVE: CASE EVENT DATE: 20200915
